FAERS Safety Report 8438382-6 (Version None)
Quarter: 2012Q2

REPORT INFORMATION
  Report Type: 
  Country: None (occurrence: None)
  Receive Date: 20120614
  Receipt Date: 20120608
  Transmission Date: 20120825
  Serious: No
  Sender: FDA-Public Use
  Company Number: JP-MERCK-1203USA03623

PATIENT
  Age: 73 Year
  Sex: Female

DRUGS (4)
  1. CONIEL [Concomitant]
     Indication: HYPERTENSION
     Route: 048
  2. ISOSORBIDE DINITRATE [Concomitant]
     Indication: HYPERTENSION
     Route: 061
     Dates: start: 20090701
  3. FOSAMAX [Suspect]
     Indication: OSTEOPOROSIS
     Route: 048
     Dates: end: 20120229
  4. OLMESARTAN MEDOXOMIL [Concomitant]
     Indication: HYPERTENSION
     Route: 048
     Dates: start: 20081212

REACTIONS (1)
  - BONE FORMATION INCREASED [None]
